FAERS Safety Report 5780987-5 (Version None)
Quarter: 2008Q2

REPORT INFORMATION
  Report Type: 
  Country: None (occurrence: None)
  Receive Date: 20080618
  Receipt Date: 20080605
  Transmission Date: 20081010
  Serious: Yes (Hospitalization)
  Sender: FDA-Public Use
  Company Number: 2008AL005563

PATIENT
  Age: 14 Year
  Sex: Female
  Weight: 42.6381 kg

DRUGS (3)
  1. DIGOXIN [Suspect]
     Indication: SUPRAVENTRICULAR TACHYCARDIA
     Dosage: 0.25MG, QD, PO
     Route: 048
     Dates: start: 19940101, end: 20080401
  2. ATENOLOL [Concomitant]
  3. DIGOXIN [Concomitant]

REACTIONS (5)
  - ABDOMINAL PAIN UPPER [None]
  - DYSPNOEA [None]
  - HEADACHE [None]
  - NAUSEA [None]
  - TACHYCARDIA [None]
